FAERS Safety Report 25790108 (Version 1)
Quarter: 2025Q3

REPORT INFORMATION
  Report Type: Spontaneous
  Country: IN (occurrence: IN)
  Receive Date: 20250911
  Receipt Date: 20250911
  Transmission Date: 20251020
  Serious: Yes (Other)
  Sender: GRANULES PHARMACEUTICALS INC
  Company Number: IN-GRANULES-IN-2025GRALIT00509

PATIENT
  Age: 4 Decade
  Sex: Male

DRUGS (1)
  1. SILDENAFIL CITRATE [Suspect]
     Active Substance: SILDENAFIL CITRATE
     Indication: Product used for unknown indication
     Route: 048

REACTIONS (9)
  - Toxicity to various agents [Recovering/Resolving]
  - Drug abuse [Unknown]
  - Maculopathy [Recovering/Resolving]
  - Vision blurred [Recovering/Resolving]
  - Photophobia [Recovering/Resolving]
  - Dyschromatopsia [Recovering/Resolving]
  - Visual field defect [Not Recovered/Not Resolved]
  - Prescription drug used without a prescription [Unknown]
  - Intentional overdose [Unknown]
